FAERS Safety Report 24957883 (Version 2)
Quarter: 2025Q1

REPORT INFORMATION
  Report Type: Spontaneous
  Country: US (occurrence: US)
  Receive Date: 20250212
  Receipt Date: 20250222
  Transmission Date: 20250409
  Serious: Yes (Hospitalization, Other)
  Sender: AUROBINDO
  Company Number: US-MLMSERVICE-20240118-4783900-1

PATIENT
  Age: 9 Decade
  Sex: Male

DRUGS (9)
  1. LINEZOLID [Suspect]
     Active Substance: LINEZOLID
     Indication: Nocardiosis
     Route: 065
  2. OXYGEN [Concomitant]
     Active Substance: OXYGEN
     Indication: Hypoxia
     Route: 045
  3. OXYGEN [Concomitant]
     Active Substance: OXYGEN
     Route: 045
  4. OXYGEN [Concomitant]
     Active Substance: OXYGEN
     Route: 045
  5. MEROPENEM [Concomitant]
     Active Substance: MEROPENEM
     Indication: Cerebral nocardiosis
     Route: 065
  6. IMIPENEM [Concomitant]
     Active Substance: IMIPENEM
     Indication: Cerebral nocardiosis
     Route: 065
  7. PREDNISONE [Concomitant]
     Active Substance: PREDNISONE
     Indication: Pulmonary sarcoidosis
     Dosage: 20 MILLIGRAM, ONCE A DAY
     Route: 065
  8. PREDNISONE [Concomitant]
     Active Substance: PREDNISONE
     Dosage: 15 MILLIGRAM, ONCE A DAY
     Route: 065
  9. TEDIZOLID [Concomitant]
     Active Substance: TEDIZOLID
     Indication: Product used for unknown indication
     Route: 065

REACTIONS (3)
  - Pancytopenia [Recovering/Resolving]
  - Myelosuppression [Recovering/Resolving]
  - Drug ineffective [Unknown]
